FAERS Safety Report 7620946-0 (Version None)
Quarter: 2011Q3

REPORT INFORMATION
  Report Type: 
  Country: None (occurrence: None)
  Receive Date: 20110719
  Receipt Date: 20110714
  Transmission Date: 20111222
  Serious: Yes (Hospitalization)
  Sender: FDA-Public Use
  Company Number: US-MERCK-1107USA01978

PATIENT
  Age: 52 Year
  Sex: Female

DRUGS (14)
  1. CHOLECALCIFEROL [Concomitant]
     Route: 065
  2. FUROSEMIDE [Concomitant]
     Route: 065
  3. PANTOPRAZOLE [Concomitant]
     Route: 065
  4. METOCLOPRAMIDE [Concomitant]
     Route: 065
  5. AZATHIOPRINE [Concomitant]
     Route: 065
  6. ACETAMINOPHEN [Concomitant]
     Route: 065
  7. ENOXAPARIN SODIUM [Concomitant]
     Route: 065
  8. AMBIEN [Concomitant]
     Route: 065
  9. FOSAMAX [Suspect]
     Indication: BONE LOSS
     Route: 048
  10. LANTUS [Concomitant]
     Route: 065
  11. ASCORBIC ACID [Concomitant]
     Route: 065
  12. TRAMADOL HYDROCHLORIDE [Concomitant]
     Route: 065
  13. PREDNISONE [Concomitant]
     Route: 065
  14. VITAMINS (UNSPECIFIED) [Concomitant]
     Route: 065

REACTIONS (2)
  - MYALGIA [None]
  - MUSCLE INJURY [None]
